FAERS Safety Report 5110327-6 (Version None)
Quarter: 2006Q3

REPORT INFORMATION
  Report Type: 
  Country: None (occurrence: None)
  Receive Date: 20060915
  Receipt Date: 20060912
  Transmission Date: 20061208
  Serious: Yes (Hospitalization)
  Sender: FDA-Public Use
  Company Number: FRWYE898512SEP06

PATIENT
  Age: 56 Year
  Sex: Female

DRUGS (3)
  1. ADVIL [Suspect]
     Dosage: 200 MG 10 X PER 1 DAY ORAL
     Route: 048
     Dates: end: 20060524
  2. PROPOFAN (CAFFEINE/CARBASALATE CALCIUM/CHLORPHENAMINE MALEATE/DEXTROPR [Suspect]
     Dosage: 1 TABLET 10X PER 1 DAY ORAL
     Route: 048
     Dates: end: 20060524
  3. ZOMIG [Suspect]
     Dosage: 1 TABLET 16X PER 1 MTH ORAL
     Route: 048
     Dates: end: 20060524

REACTIONS (4)
  - DRUG ABUSER [None]
  - DRUG DEPENDENCE [None]
  - HEADACHE [None]
  - OVERDOSE [None]
